FAERS Safety Report 13800589 (Version 2)
Quarter: 2017Q3

REPORT INFORMATION
  Report Type: Spontaneous
  Country: US (occurrence: US)
  Receive Date: 20170727
  Receipt Date: 20170801
  Transmission Date: 20171127
  Serious: No
  Sender: FDA-Public Use
  Company Number: US-B.I. PHARMACEUTICALS,INC./RIDGEFIELD-2017-BI-041378

PATIENT
  Sex: Male

DRUGS (4)
  1. AGGRENOX [Suspect]
     Active Substance: ASPIRIN\DIPYRIDAMOLE
     Indication: TRANSIENT ISCHAEMIC ATTACK
     Dosage: 1 CAPSULE BID;  FORM STRENGTH: 25 MG / 200 MG; FORMULATION: CAPSULE? ADMINISTRATION CORRECT? YES ?AC
     Route: 048
     Dates: start: 2007
  2. VALSARTAN / HYDROCHLOROTHIAZIDE [Concomitant]
     Active Substance: HYDROCHLOROTHIAZIDE\VALSARTAN
     Indication: HYPERTENSION
     Dosage: STRENGTH: 160 MG /12.5 MG; FORMULATION: TABLET
     Route: 048
     Dates: start: 2007
  3. AMLODIPINE [Concomitant]
     Active Substance: AMLODIPINE BESYLATE
     Indication: HYPERTENSION
     Dosage: STRENGTH: 5 MG; FORMULATION: TABLET
     Route: 048
     Dates: start: 2016
  4. SIMVASTATIN. [Concomitant]
     Active Substance: SIMVASTATIN
     Indication: BLOOD CHOLESTEROL INCREASED
     Dosage: STRENGTH: 10 MG; FORMULATION: TABLET
     Route: 048
     Dates: start: 2010

REACTIONS (1)
  - Sciatica [Not Recovered/Not Resolved]

NARRATIVE: CASE EVENT DATE: 2015
